FAERS Safety Report 5493151-4 (Version None)
Quarter: 2007Q4

REPORT INFORMATION
  Report Type: 
  Country: None (occurrence: None)
  Receive Date: 20071022
  Receipt Date: 20071022
  Transmission Date: 20080405
  Serious: Yes (Other)
  Sender: FDA-Public Use
  Company Number: None

PATIENT
  Sex: Female
  Weight: 72.5755 kg

DRUGS (1)
  1. PHENYTOIN 100MG ER CAPS TARO BRAND [Suspect]
     Indication: HEADACHE
     Dosage: 100MG  3HS  PO
     Route: 048
     Dates: start: 20071011, end: 20071016

REACTIONS (2)
  - HEADACHE [None]
  - MUSCLE TWITCHING [None]
